FAERS Safety Report 7569826-X (Version None)
Quarter: 2011Q2

REPORT INFORMATION
  Report Type: 
  Country: None (occurrence: None)
  Receive Date: 20110620
  Receipt Date: 20110608
  Transmission Date: 20111010
  Serious: Yes (Death, Hospitalization)
  Sender: FDA-Public Use
  Company Number: UTC-007399

PATIENT
  Age: 56 Year
  Sex: Female

DRUGS (3)
  1. REVATIO [Suspect]
  2. REMODULIN [Suspect]
     Indication: PULMONARY ARTERIAL HYPERTENSION
     Dosage: 72 UG/KG (0.05 UG/KG,1 IN 1 MIN),SUBCUTANEOUS
     Route: 058
     Dates: start: 20100915
  3. TRACLEER [Suspect]

REACTIONS (1)
  - CARDIAC FAILURE CONGESTIVE [None]
